FAERS Safety Report 9303070 (Version 2)
Quarter: 2013Q3

REPORT INFORMATION
  Report Type: Report from Study
  Country: JP (occurrence: JP)
  Receive Date: 20130522
  Receipt Date: 20130705
  Transmission Date: 20140515
  Serious: Yes (Death)
  Sender: FDA-Public Use
  Company Number: JP-PFIZER INC-2013154685

PATIENT
  Age: 52 Year
  Sex: Female
  Weight: 46.4 kg

DRUGS (14)
  1. CRIZOTINIB [Suspect]
     Indication: NON-SMALL CELL LUNG CANCER
     Dosage: 250 MG, 2X/DAY
     Route: 048
     Dates: start: 20120523, end: 20120609
  2. CRIZOTINIB [Suspect]
     Dosage: 200 MG, 2X/DAY
     Route: 048
     Dates: start: 20120614, end: 20120625
  3. CRIZOTINIB [Suspect]
     Dosage: 200 MG, ALTERNATE DAY
     Route: 048
     Dates: start: 20120713, end: 20120805
  4. CRIZOTINIB [Suspect]
     Dosage: 200 MG, 2X/DAY
     Route: 048
     Dates: start: 20120806, end: 20120820
  5. CRIZOTINIB [Suspect]
     Dosage: 200 MG, 1X/DAY
     Route: 048
     Dates: start: 20120828, end: 20120909
  6. OXYCONTIN [Concomitant]
     Dosage: 5 MG, 3X/DAY
     Route: 048
  7. OXINORM [Concomitant]
     Dosage: 10 MG, AS NEEDED
     Route: 048
  8. MAGNESIUM OXIDE [Concomitant]
     Dosage: 1.5 G, 3X/DAY
     Route: 048
  9. PROMAC D [Concomitant]
     Dosage: 75 MG, 2X/DAY
     Route: 048
     Dates: start: 20120525
  10. OMEPRAZOLE [Concomitant]
     Dosage: 10 MG, 1X/DAY
     Route: 048
     Dates: start: 20120525
  11. CALONAL [Concomitant]
     Dosage: 300 MG, 3X/DAY
     Route: 048
     Dates: start: 20120525
  12. MYSLEE [Concomitant]
     Dosage: 5 MG, 1X/DAY
     Route: 048
     Dates: start: 20120621
  13. URSODEOXYCHOLIC ACID [Concomitant]
     Dosage: 100 MG, 3X/DAY
     Route: 048
     Dates: start: 20120820
  14. GLYCYRON [Concomitant]
     Dosage: 3 DF, 3X/DAY
     Route: 048
     Dates: start: 20120820

REACTIONS (2)
  - Disease progression [Fatal]
  - Non-small cell lung cancer [Fatal]
